FAERS Safety Report 7678215-9 (Version None)
Quarter: 2011Q3

REPORT INFORMATION
  Report Type: 
  Country: None (occurrence: None)
  Receive Date: 20110811
  Receipt Date: 20110801
  Transmission Date: 20111222
  Serious: Yes (Other)
  Sender: FDA-Public Use
  Company Number: US-ELI_LILLY_AND_COMPANY-US201106008607

PATIENT
  Sex: Female

DRUGS (6)
  1. PREDNISONE [Concomitant]
     Dosage: UNK
  2. HUMULIN N [Suspect]
     Dosage: 10 U, OTHER
     Dates: start: 20110401
  3. HUMULIN N [Suspect]
     Indication: TYPE 2 DIABETES MELLITUS
     Dosage: 34 U, EACH MORNING
     Dates: start: 20110401
  4. HUMULIN N [Suspect]
     Dosage: 10 U, OTHER
     Dates: start: 20110401
  5. HUMULIN N [Suspect]
     Dosage: 34 U, EACH MORNING
     Dates: start: 20110401
  6. HUMULIN R [Suspect]
     Indication: TYPE 2 DIABETES MELLITUS
     Dosage: UNK, PRN

REACTIONS (3)
  - MEDICATION ERROR [None]
  - CHRONIC OBSTRUCTIVE PULMONARY DISEASE [None]
  - DYSPNOEA [None]
